FAERS Safety Report 9190105 (Version 1)
Quarter: 2013Q1

REPORT INFORMATION
  Report Type: Spontaneous
  Country: US (occurrence: US)
  Receive Date: 20130326
  Receipt Date: 20130326
  Transmission Date: 20140127
  Serious: No
  Sender: FDA-Public Use
  Company Number: US-TEVA-393520USA

PATIENT
  Age: 23 Year
  Sex: Male

DRUGS (3)
  1. AMRIX [Suspect]
     Dosage: 30 MG
  2. SOMA [Concomitant]
  3. CANNABIS SATIVA SUBSP. INDICA TOP [Concomitant]

REACTIONS (2)
  - Aggression [Unknown]
  - Personality change [Unknown]
